FAERS Safety Report 18686173 (Version 1)
Quarter: 2020Q4

REPORT INFORMATION
  Report Type: Spontaneous
  Country: US (occurrence: US)
  Receive Date: 20201231
  Receipt Date: 20201231
  Transmission Date: 20210114
  Serious: No
  Sender: FDA-Public Use
  Company Number: US-ASTRAZENECA-2020SF63091

PATIENT
  Age: 45 Year
  Sex: Female
  Weight: 59 kg

DRUGS (3)
  1. IPRAPROPIUM ALBUTEROL [Concomitant]
     Indication: ASTHMA
     Dosage: AS REQUIRED
  2. QVAR [Concomitant]
     Active Substance: BECLOMETHASONE DIPROPIONATE
     Indication: ASTHMA
     Dosage: DAILY
  3. BUDESONIDE AND FORMOTEROL AEROSOL [Suspect]
     Active Substance: BUDESONIDE\FORMOTEROL FUMARATE DIHYDRATE
     Indication: ASTHMA
     Dosage: 160/4.5 MCG, 2 PUFFS, TWICE DAY
     Route: 055

REACTIONS (10)
  - Device malfunction [Unknown]
  - Wrong technique in device usage process [Unknown]
  - Viral infection [Unknown]
  - Intentional product misuse [Unknown]
  - Dysphonia [Unknown]
  - Incorrect dose administered [Unknown]
  - Cough [Unknown]
  - Nasopharyngitis [Unknown]
  - Intentional product use issue [Unknown]
  - Dyspnoea [Unknown]

NARRATIVE: CASE EVENT DATE: 2020
